FAERS Safety Report 8023824-0 (Version None)
Quarter: 2012Q1

REPORT INFORMATION
  Report Type: 
  Country: None (occurrence: None)
  Receive Date: 20120105
  Receipt Date: 20111229
  Transmission Date: 20120608
  Serious: Yes (Other)
  Sender: FDA-Public Use
  Company Number: US-VERTEX PHARMACEUTICALS INC.-AE-2012-000126

PATIENT
  Sex: Female

DRUGS (6)
  1. PEGASYS [Concomitant]
     Indication: HEPATITIS C
     Route: 058
     Dates: start: 20111109, end: 20111214
  2. RIBAVIRIN [Concomitant]
     Indication: HEPATITIS C
     Route: 048
     Dates: start: 20111109, end: 20111214
  3. RIBAVIRIN [Concomitant]
     Route: 048
     Dates: start: 20111214
  4. INCIVEK [Suspect]
     Indication: HEPATITIS C
     Route: 048
     Dates: start: 20111109
  5. PEGASYS [Concomitant]
     Route: 058
     Dates: start: 20111214
  6. ARANESP [Concomitant]
     Indication: HEPATITIS C
     Route: 058
     Dates: start: 20111214

REACTIONS (5)
  - DECREASED APPETITE [None]
  - DIZZINESS [None]
  - PRESYNCOPE [None]
  - CHILLS [None]
  - SUICIDAL IDEATION [None]
